FAERS Safety Report 5265905-0 (Version None)
Quarter: 2007Q1

REPORT INFORMATION
  Report Type: 
  Country: None (occurrence: None)
  Receive Date: 20070315
  Receipt Date: 20070301
  Transmission Date: 20070707
  Serious: Yes (Hospitalization)
  Sender: FDA-Public Use
  Company Number: PHHO2007JP04194

PATIENT
  Age: 69 Year
  Sex: Male

DRUGS (9)
  1. DIOVAN [Suspect]
     Indication: HYPERTENSION
     Dosage: 160 MG, QD
     Route: 048
     Dates: start: 20030916, end: 20060409
  2. CALBLOCK [Concomitant]
     Indication: HYPERTENSION
  3. ACECOL [Concomitant]
     Indication: HYPERTENSION
  4. CARDENALIN [Concomitant]
     Indication: HYPERTENSION
  5. FLUITRAN [Concomitant]
     Indication: HYPERTENSION
  6. HUMACART-N [Concomitant]
     Indication: DIABETES MELLITUS
  7. HUMALOG [Concomitant]
     Indication: DIABETES MELLITUS
  8. TENORMIN [Concomitant]
     Indication: HYPERTENSION
  9. WYTENS [Concomitant]
     Indication: HYPERTENSION

REACTIONS (3)
  - APHASIA [None]
  - DEPRESSED LEVEL OF CONSCIOUSNESS [None]
  - THROMBOTIC STROKE [None]
